FAERS Safety Report 16590632 (Version 1)
Quarter: 2019Q3

REPORT INFORMATION
  Report Type: Spontaneous
  Country: US (occurrence: US)
  Receive Date: 20190717
  Receipt Date: 20190717
  Transmission Date: 20191004
  Serious: Yes (Death)
  Sender: FDA-Public Use
  Company Number: None

PATIENT
  Age: 76 Year
  Sex: Female
  Weight: 55.35 kg

DRUGS (7)
  1. PRAVASTATIN. [Concomitant]
     Active Substance: PRAVASTATIN
  2. ELIQUIS [Concomitant]
     Active Substance: APIXABAN
  3. AMLODIPINE [Concomitant]
     Active Substance: AMLODIPINE BESYLATE
  4. KISQALI [Suspect]
     Active Substance: RIBOCICLIB
     Indication: PANCREATIC CARCINOMA
     Route: 048
     Dates: start: 20190401, end: 20190717
  5. METFORMIN [Concomitant]
     Active Substance: METFORMIN HYDROCHLORIDE
  6. METOPROLOL. [Concomitant]
     Active Substance: METOPROLOL
  7. CHANTIX [Concomitant]
     Active Substance: VARENICLINE TARTRATE

REACTIONS (1)
  - Death [None]

NARRATIVE: CASE EVENT DATE: 20190717
